FAERS Safety Report 15547128 (Version 1)
Quarter: 2018Q4

REPORT INFORMATION
  Report Type: Spontaneous
  Country: FR (occurrence: FR)
  Receive Date: 20181024
  Receipt Date: 20181024
  Transmission Date: 20190205
  Serious: Yes (Other)
  Sender: FDA-Public Use
  Company Number: PHHY2018FR133959

PATIENT
  Age: 62 Year
  Sex: Male

DRUGS (2)
  1. PREDNISONE. [Suspect]
     Active Substance: PREDNISONE
     Dosage: 14 MG, QD
     Route: 065
  2. PREDNISONE. [Suspect]
     Active Substance: PREDNISONE
     Indication: POLYMYALGIA RHEUMATICA
     Dosage: 20 MG, QD
     Route: 065

REACTIONS (5)
  - Visual acuity reduced [Recovered/Resolved]
  - Metamorphopsia [Unknown]
  - Macular degeneration [Unknown]
  - Chorioretinitis [Unknown]
  - Dyschromatopsia [Unknown]
